FAERS Safety Report 5822325-5 (Version None)
Quarter: 2008Q3

REPORT INFORMATION
  Report Type: 
  Country: None (occurrence: None)
  Receive Date: 20080723
  Receipt Date: 20080723
  Transmission Date: 20090109
  Serious: Yes (Disabling)
  Sender: FDA-Public Use
  Company Number: None

PATIENT
  Sex: Female

DRUGS (1)
  1. ALENDRONATE SODIUM [Suspect]
     Indication: OSTEOPOROSIS
     Dosage: 70MG WEEKLY PO
     Route: 048

REACTIONS (5)
  - CAUSTIC INJURY [None]
  - DYSPHAGIA [None]
  - DYSPNOEA [None]
  - FOREIGN BODY TRAUMA [None]
  - INFLAMMATION [None]
